FAERS Safety Report 23998231 (Version 2)
Quarter: 2025Q4

REPORT INFORMATION
  Report Type: Report from Study
  Country: EU (occurrence: EU)
  Receive Date: 20240621
  Receipt Date: 20251113
  Transmission Date: 20260118
  Serious: Yes (Other)
  Sender: TAKEDA
  Company Number: EU-ABBVIE-5511781

PATIENT
  Sex: Female

DRUGS (6)
  1. VEDOLIZUMAB [Suspect]
     Active Substance: VEDOLIZUMAB
     Indication: Crohn^s disease
     Dosage: UNK
  2. ADALIMUMAB [Suspect]
     Active Substance: ADALIMUMAB
     Indication: Crohn^s disease
     Dosage: UNK
  3. USTEKINUMAB [Suspect]
     Active Substance: USTEKINUMAB
     Indication: Crohn^s disease
     Dosage: UNK UNK, Q4WEEKS
     Dates: start: 201902, end: 201910
  4. INFLIXIMAB [Suspect]
     Active Substance: INFLIXIMAB
     Indication: Crohn^s disease
     Dosage: UNK
  5. PREDNISOLONE [Suspect]
     Active Substance: PREDNISOLONE
     Indication: Crohn^s disease
     Dosage: UNK
  6. UPADACITINIB [Suspect]
     Active Substance: UPADACITINIB
     Indication: Crohn^s disease
     Dosage: UNK

REACTIONS (12)
  - Colon operation [Recovered/Resolved]
  - Therapeutic product effect decreased [Not Recovered/Not Resolved]
  - Small intestinal resection [Unknown]
  - Drug ineffective [Not Recovered/Not Resolved]
  - Enteritis [Not Recovered/Not Resolved]
  - Fistula [Unknown]
  - Therapeutic product effect incomplete [Not Recovered/Not Resolved]
  - Sleeve gastrectomy [Unknown]
  - Therapeutic product effect decreased [Not Recovered/Not Resolved]
  - Adverse event [Unknown]
  - Colitis [Recovered/Resolved]
  - Colostomy [Unknown]
